FAERS Safety Report 8022051-0 (Version None)
Quarter: 2012Q1

REPORT INFORMATION
  Report Type: 
  Country: None (occurrence: None)
  Receive Date: 20120104
  Receipt Date: 20111227
  Transmission Date: 20120608
  Serious: Yes (Hospitalization)
  Sender: FDA-Public Use
  Company Number: US-ELI_LILLY_AND_COMPANY-US201112007532

PATIENT
  Age: 55 Year
  Sex: Male

DRUGS (3)
  1. GEMCITABINE HYDROCHLORIDE [Suspect]
     Indication: TRANSITIONAL CELL CARCINOMA
     Dosage: 1000 MG/M2, DAYS 1 AND 8 OF EACH CYCLE
     Dates: start: 20111011
  2. SUNITINIB MALATE [Suspect]
     Indication: TRANSITIONAL CELL CARCINOMA
     Dosage: 25 MG, DAYS 1-14
     Dates: start: 20111011
  3. CISPLATIN [Suspect]
     Indication: TRANSITIONAL CELL CARCINOMA
     Dosage: 35 MG/M2, DAYS 1 AND 8 OF EACH CYCLE
     Dates: start: 20111011, end: 20111121

REACTIONS (1)
  - ARTERIAL THROMBOSIS [None]
